FAERS Safety Report 15495204 (Version 3)
Quarter: 2018Q4

REPORT INFORMATION
  Report Type: Spontaneous
  Country: CZ (occurrence: CZ)
  Receive Date: 20181012
  Receipt Date: 20181019
  Transmission Date: 20190205
  Serious: Yes (Death, Hospitalization, Other)
  Sender: FDA-Public Use
  Company Number: PHHY2018CZ123244

PATIENT
  Age: 23 Year
  Sex: Female
  Weight: 59 kg

DRUGS (6)
  1. DOCETAXEL. [Suspect]
     Active Substance: DOCETAXEL
     Indication: LUNG ADENOCARCINOMA
     Dosage: UNK UNK, Q3W (CYCLIC, EVERY 3 WEEKS)
     Route: 065
  2. VARGATEF [Suspect]
     Active Substance: NINTEDANIB
     Indication: LUNG ADENOCARCINOMA STAGE IV
     Dosage: 400 MG, QD
     Route: 048
     Dates: start: 20140821, end: 20141106
  3. OXYCODONE [Concomitant]
     Active Substance: OXYCODONE
     Indication: BONE PAIN
     Dosage: 80 MG, QD
     Route: 048
     Dates: start: 20140625, end: 20141110
  4. DICLOFENAC [Concomitant]
     Active Substance: DICLOFENAC
     Indication: BONE PAIN
     Dosage: 100 MG, QD
     Route: 048
     Dates: start: 20141105, end: 20141110
  5. VARGATEF [Suspect]
     Active Substance: NINTEDANIB
     Indication: NON-SMALL CELL LUNG CANCER
  6. IBUPROFEN. [Concomitant]
     Active Substance: IBUPROFEN
     Indication: BONE PAIN
     Dosage: 800 MG, QD
     Route: 048
     Dates: start: 20141016, end: 20141107

REACTIONS (15)
  - Gastrointestinal toxicity [Fatal]
  - Nausea [Fatal]
  - Vomiting [Fatal]
  - Hypocalcaemia [None]
  - Hepatotoxicity [Fatal]
  - Blood alkaline phosphatase increased [Unknown]
  - Diarrhoea [Fatal]
  - Malignant neoplasm progression [Fatal]
  - Alanine aminotransferase increased [Fatal]
  - Intestinal haemorrhage [Fatal]
  - Aspartate aminotransferase increased [Fatal]
  - Duodenal ulcer [Fatal]
  - Gastrointestinal haemorrhage [None]
  - Candida infection [Fatal]
  - Anaemia [Fatal]

NARRATIVE: CASE EVENT DATE: 2014
